FAERS Safety Report 13990816 (Version 1)
Quarter: 2017Q3

REPORT INFORMATION
  Report Type: Spontaneous
  Country: IN (occurrence: IN)
  Receive Date: 20170920
  Receipt Date: 20170920
  Transmission Date: 20171128
  Serious: Yes (Life-Threatening, Hospitalization, Other)
  Sender: FDA-Public Use
  Company Number: IN-ALVOGEN-2017-ALVOGEN-093529

PATIENT
  Age: 3 Day
  Sex: Male
  Weight: 2 kg

DRUGS (2)
  1. FLECAINIDE [Suspect]
     Active Substance: FLECAINIDE
     Indication: NODAL ARRHYTHMIA
     Route: 048
  2. METOPROLOL. [Concomitant]
     Active Substance: METOPROLOL
     Indication: NODAL ARRHYTHMIA
     Route: 040

REACTIONS (7)
  - Bradycardia neonatal [Recovered/Resolved]
  - Accidental overdose [Recovered/Resolved]
  - Left ventricular dysfunction [Recovered/Resolved]
  - Electrocardiogram QRS complex prolonged [Recovered/Resolved]
  - Product preparation error [Recovered/Resolved]
  - Cardiovascular insufficiency [Recovered/Resolved]
  - Toxicity to various agents [Recovered/Resolved]
